FAERS Safety Report 5179469-3 (Version None)
Quarter: 2006Q4

REPORT INFORMATION
  Report Type: 
  Country: None (occurrence: None)
  Receive Date: 20061211
  Receipt Date: 20061127
  Transmission Date: 20070319
  Serious: Yes (Other)
  Sender: FDA-Public Use
  Company Number: 2006SP007222

PATIENT
  Age: 51 Year
  Sex: Male

DRUGS (5)
  1. TEMODAL [Suspect]
     Dosage: 100 MG;QD;PO
     Route: 048
     Dates: start: 20061120
  2. DEPAKENE [Concomitant]
  3. ALUMINUM HYDROXIDE [Concomitant]
  4. DEXAMETHASONE [Concomitant]
  5. FRAXIPARIN [Concomitant]

REACTIONS (7)
  - ANOREXIA [None]
  - DIARRHOEA [None]
  - DIZZINESS [None]
  - HAEMORRHOIDS [None]
  - PYREXIA [None]
  - SKIN DISCOLOURATION [None]
  - SPEECH DISORDER [None]
